FAERS Safety Report 24830219 (Version 2)
Quarter: 2025Q1

REPORT INFORMATION
  Report Type: Spontaneous
  Country: NL (occurrence: NL)
  Receive Date: 20250110
  Receipt Date: 20250124
  Transmission Date: 20250409
  Serious: Yes (Death, Life-Threatening, Hospitalization, Other)
  Sender: ACCORD
  Company Number: NL-Accord-463141

PATIENT
  Age: 73 Year
  Sex: Male

DRUGS (10)
  1. MYCOPHENOLATE MOFETIL [Suspect]
     Active Substance: MYCOPHENOLATE MOFETIL
     Indication: Systemic lupus erythematosus
     Dosage: 1 G TWICE DAILY FOR FIVE MONTHS
  2. PREDNISOLONE [Suspect]
     Active Substance: PREDNISOLONE
     Indication: Systemic lupus erythematosus
  3. AMLODIPINE [Concomitant]
     Active Substance: AMLODIPINE BESYLATE
     Indication: Hypertension
  4. FUROSEMIDE [Concomitant]
     Active Substance: FUROSEMIDE
     Indication: Fluid retention
  5. CEFTRIAXONE [Concomitant]
     Active Substance: CEFTRIAXONE
     Indication: Pneumonia
  6. NADROPARIN [Concomitant]
     Active Substance: NADROPARIN
     Indication: Product used for unknown indication
     Dosage: 7600 IE S.C. ONCE DAILY
     Route: 058
  7. MYCOPHENOLATE MOFETIL [Suspect]
     Active Substance: MYCOPHENOLATE MOFETIL
     Indication: Nephritis
     Dosage: 1 G TWICE DAILY FOR FIVE MONTHS
  8. PREDNISOLONE [Suspect]
     Active Substance: PREDNISOLONE
     Indication: Nephritis
  9. PREDNISOLONE [Suspect]
     Active Substance: PREDNISOLONE
     Indication: Cytomegalovirus chorioretinitis
  10. FUROSEMIDE [Concomitant]
     Active Substance: FUROSEMIDE
     Indication: Fluid retention

REACTIONS (15)
  - Lung abscess [Fatal]
  - Brain abscess [Fatal]
  - Myocardiac abscess [Fatal]
  - Myocarditis mycotic [Fatal]
  - Cytomegalovirus chorioretinitis [Unknown]
  - Off label use [Unknown]
  - Aspergillus infection [Fatal]
  - Disseminated aspergillosis [Fatal]
  - Respiratory failure [Fatal]
  - Depressed level of consciousness [Fatal]
  - Coma [Fatal]
  - Cerebral haemorrhage [Fatal]
  - Brain herniation [Fatal]
  - Intraventricular haemorrhage [Fatal]
  - Cerebellar haemorrhage [Fatal]
